FAERS Safety Report 6235403-6 (Version None)
Quarter: 2009Q2

REPORT INFORMATION
  Report Type: 
  Country: None (occurrence: None)
  Receive Date: 20090618
  Receipt Date: 20090224
  Transmission Date: 20091009
  Serious: No
  Sender: FDA-Public Use
  Company Number: US-ASTRAZENECA-2009UW05101

PATIENT
  Age: 67 Year
  Sex: Female
  Weight: 60.3 kg

DRUGS (10)
  1. ENTOCORT EC [Suspect]
     Indication: CROHN'S DISEASE
     Route: 048
  2. SIMVASTATIN [Concomitant]
  3. CIMETIDINE [Concomitant]
  4. FUROSEMIDE [Concomitant]
  5. ATENOLOL [Concomitant]
  6. KLOR-CON [Concomitant]
  7. MULTI-VITAMINS [Concomitant]
  8. CALCIUM [Concomitant]
  9. BENTYL [Concomitant]
  10. LOMOTIL [Concomitant]

REACTIONS (2)
  - DIZZINESS [None]
  - HALLUCINATION, VISUAL [None]
